FAERS Safety Report 16458003 (Version 2)
Quarter: 2019Q3

REPORT INFORMATION
  Report Type: Spontaneous
  Country: US (occurrence: US)
  Receive Date: 20190620
  Receipt Date: 20190709
  Transmission Date: 20191004
  Serious: No
  Sender: FDA-Public Use
  Company Number: US-PFIZER INC-2019260886

PATIENT
  Age: 15 Year
  Sex: Male
  Weight: 42.63 kg

DRUGS (1)
  1. GENOTROPIN [Suspect]
     Active Substance: SOMATROPIN
     Indication: GROWTH DISORDER
     Dosage: 1.6 MG, 1X/DAY
     Route: 030
     Dates: start: 2014

REACTIONS (2)
  - Product use issue [Unknown]
  - Off label use [Unknown]
